FAERS Safety Report 22151863 (Version 2)
Quarter: 2023Q2

REPORT INFORMATION
  Report Type: Spontaneous
  Country: US (occurrence: US)
  Receive Date: 20230329
  Receipt Date: 20230501
  Transmission Date: 20230722
  Serious: Yes (Other)
  Sender: FDA-Public Use
  Company Number: US-MEDEXUS PHARMA, INC.-2023MED00122

PATIENT
  Age: 79 Year
  Sex: Female

DRUGS (2)
  1. RASUVO [Suspect]
     Active Substance: METHOTREXATE SODIUM
     Indication: Rheumatoid arthritis
     Dosage: 22.5 MG, 1X/WEEK
     Route: 058
     Dates: end: 2022
  2. UNSPECIFIED INGREDIENT [Concomitant]
     Active Substance: UNSPECIFIED INGREDIENT

REACTIONS (5)
  - Cardiac operation [Unknown]
  - Hip arthroplasty [Unknown]
  - Hospice care [Not Recovered/Not Resolved]
  - Fall [Unknown]
  - Unevaluable event [Unknown]

NARRATIVE: CASE EVENT DATE: 20220801
